FAERS Safety Report 24184612 (Version 2)
Quarter: 2024Q4

REPORT INFORMATION
  Report Type: Spontaneous
  Country: US (occurrence: US)
  Receive Date: 20240807
  Receipt Date: 20241014
  Transmission Date: 20250114
  Serious: Yes (Other)
  Sender: SANOFI AVENTIS
  Company Number: US-SA-SAC20240802001253

PATIENT
  Age: 65 Year
  Sex: Male

DRUGS (2)
  1. DUPIXENT [Suspect]
     Active Substance: DUPILUMAB
     Indication: Dermatitis atopic
     Dosage: 300 MG, QOW
     Route: 058
  2. PROPRANOLOL [Concomitant]
     Active Substance: PROPRANOLOL HYDROCHLORIDE
     Indication: Anxiety

REACTIONS (8)
  - Syncope [Unknown]
  - Rash pruritic [Unknown]
  - Skin warm [Unknown]
  - Cough [Unknown]
  - Sinus congestion [Unknown]
  - Blood pressure decreased [Unknown]
  - Dizziness [Unknown]
  - Pruritus [Unknown]

NARRATIVE: CASE EVENT DATE: 20240501
